FAERS Safety Report 7107664-2 (Version None)
Quarter: 2010Q4

REPORT INFORMATION
  Report Type: 
  Country: None (occurrence: None)
  Receive Date: 20101117
  Receipt Date: 20101105
  Transmission Date: 20110411
  Serious: Yes (Hospitalization, Other)
  Sender: FDA-Public Use
  Company Number: US-ELI_LILLY_AND_COMPANY-US201005004441

PATIENT
  Sex: Female

DRUGS (10)
  1. FORTEO [Suspect]
     Indication: OSTEOPOROSIS
     Dosage: 20 UG, DAILY (1/D)
     Dates: start: 20100111
  2. CARVEDILOL [Concomitant]
  3. MOBIC [Concomitant]
  4. SYNTHROID [Concomitant]
  5. ASPIRIN [Concomitant]
  6. RAMIPRIL [Concomitant]
  7. LOVASTATIN [Concomitant]
  8. TRAMADOL HCL [Concomitant]
  9. CALCIUM [Concomitant]
  10. CYMBALTA [Concomitant]

REACTIONS (2)
  - FALL [None]
  - LOWER LIMB FRACTURE [None]
